FAERS Safety Report 5854578-1 (Version None)
Quarter: 2008Q3

REPORT INFORMATION
  Report Type: 
  Country: None (occurrence: None)
  Receive Date: 20080822
  Receipt Date: 20080812
  Transmission Date: 20090109
  Serious: Yes (Other)
  Sender: FDA-Public Use
  Company Number: US-PFIZER INC-2008067124

PATIENT
  Sex: Male
  Weight: 88.5 kg

DRUGS (2)
  1. ZOLOFT [Suspect]
     Indication: ANXIETY
  2. XANAX [Concomitant]

REACTIONS (7)
  - ABNORMAL DREAMS [None]
  - ANXIETY [None]
  - FEELING ABNORMAL [None]
  - HALLUCINATION [None]
  - INITIAL INSOMNIA [None]
  - MIDDLE INSOMNIA [None]
  - SOCIAL FEAR [None]
